FAERS Safety Report 17944717 (Version 1)
Quarter: 2020Q2

REPORT INFORMATION
  Report Type: Report from Study
  Country: US (occurrence: US)
  Receive Date: 20200625
  Receipt Date: 20200625
  Transmission Date: 20200714
  Serious: Yes (Hospitalization, Other)
  Sender: FDA-Public Use
  Company Number: NVSC2020US174650

PATIENT
  Age: 63 Year
  Sex: Male
  Weight: 82.4 kg

DRUGS (3)
  1. TRAMETINIB [Suspect]
     Active Substance: TRAMETINIB
     Indication: MALIGNANT MELANOMA
     Dosage: 2 MG, QD
     Route: 048
     Dates: start: 20200319, end: 20200519
  2. GSK2118436 [Suspect]
     Active Substance: DABRAFENIB
     Indication: MALIGNANT MELANOMA
     Dosage: 150 MG, BID
     Route: 048
     Dates: start: 20200319, end: 20200519
  3. NAVITOCLAX [Suspect]
     Active Substance: NAVITOCLAX
     Indication: MALIGNANT MELANOMA
     Dosage: 225 MG, QD
     Route: 048
     Dates: start: 20200319, end: 20200519

REACTIONS (9)
  - Sinus bradycardia [Recovered/Resolved]
  - Syncope [Recovered/Resolved]
  - Large intestine perforation [Unknown]
  - Vomiting [Recovered/Resolved]
  - Peritonitis [Unknown]
  - Sepsis [Unknown]
  - Decreased appetite [Unknown]
  - Confusional state [Recovered/Resolved]
  - Hypoxia [Recovered/Resolved]

NARRATIVE: CASE EVENT DATE: 20200328
